FAERS Safety Report 22227501 (Version 2)
Quarter: 2023Q2

REPORT INFORMATION
  Report Type: Spontaneous
  Country: US (occurrence: None)
  Receive Date: 20230419
  Receipt Date: 20230511
  Transmission Date: 20230722
  Serious: No
  Sender: FDA-Public Use
  Company Number: 2023A079994

PATIENT
  Sex: Female
  Weight: 68 kg

DRUGS (2)
  1. TEZSPIRE [Suspect]
     Active Substance: TEZEPELUMAB-EKKO
     Indication: Asthma
     Route: 058
     Dates: start: 202211, end: 202301
  2. FASENRA [Suspect]
     Active Substance: BENRALIZUMAB
     Indication: Asthma
     Route: 058
     Dates: start: 202001, end: 202003

REACTIONS (9)
  - Pain [Recovering/Resolving]
  - Arthralgia [Recovering/Resolving]
  - Cough [Unknown]
  - Asthma [Unknown]
  - Arthritis [Recovering/Resolving]
  - Gait disturbance [Recovering/Resolving]
  - Joint swelling [Recovering/Resolving]
  - Bursitis [Recovering/Resolving]
  - Intervertebral disc protrusion [Unknown]
